FAERS Safety Report 6063502-0 (Version None)
Quarter: 2009Q1

REPORT INFORMATION
  Report Type: 
  Country: None (occurrence: None)
  Receive Date: 20090203
  Receipt Date: 20090130
  Transmission Date: 20090719
  Serious: No
  Sender: FDA-Public Use
  Company Number: US-B.I. PHARMACEUTICALS,INC./RIDGEFIELD-2008-BP-18948BP

PATIENT
  Age: 37 Year
  Sex: Female
  Weight: 98 kg

DRUGS (2)
  1. DULCOLAX [Suspect]
     Indication: CONSTIPATION
     Dosage: 20MG
     Route: 048
     Dates: start: 20081206, end: 20081206
  2. IRON PILLS [Concomitant]
     Indication: ANAEMIA

REACTIONS (1)
  - ABDOMINAL PAIN [None]
